FAERS Safety Report 22925799 (Version 3)
Quarter: 2023Q4

REPORT INFORMATION
  Report Type: Spontaneous
  Country: CO (occurrence: CO)
  Receive Date: 20230908
  Receipt Date: 20231016
  Transmission Date: 20240109
  Serious: Yes (Other)
  Sender: FDA-Public Use
  Company Number: CO-GLAXOSMITHKLINE-CO2023AMR120059

PATIENT

DRUGS (1)
  1. MEPOLIZUMAB [Suspect]
     Active Substance: MEPOLIZUMAB
     Indication: Asthma
     Dosage: 100 MG, MO (EVERY 30 DAYS)

REACTIONS (10)
  - Choking [Not Recovered/Not Resolved]
  - Asthmatic crisis [Not Recovered/Not Resolved]
  - Dyspnoea [Not Recovered/Not Resolved]
  - Chest discomfort [Not Recovered/Not Resolved]
  - Abdominal pain upper [Recovered/Resolved]
  - Diarrhoea [Recovered/Resolved]
  - Skin disorder [Not Recovered/Not Resolved]
  - Visual impairment [Not Recovered/Not Resolved]
  - Asthma [Unknown]
  - Product availability issue [Unknown]

NARRATIVE: CASE EVENT DATE: 20230101
